FAERS Safety Report 4807435-3 (Version None)
Quarter: 2005Q4

REPORT INFORMATION
  Report Type: 
  Country: None (occurrence: None)
  Receive Date: 20051020
  Receipt Date: 20050831
  Transmission Date: 20060501
  Serious: Yes (Disabling)
  Sender: FDA-Public Use
  Company Number: 2005001723

PATIENT
  Age: 60 Year
  Sex: Male

DRUGS (3)
  1. TARCEVA [Suspect]
     Dosage: 150 MG (QD), ORAL
     Route: 048
     Dates: start: 20050714, end: 20050901
  2. DIAVON (VALSARTAN) [Concomitant]
  3. LIPITOR [Concomitant]

REACTIONS (1)
  - RETINAL DETACHMENT [None]
